FAERS Safety Report 5045802-6 (Version None)
Quarter: 2006Q2

REPORT INFORMATION
  Report Type: 
  Country: None (occurrence: None)
  Receive Date: 20060601
  Receipt Date: 20060315
  Transmission Date: 20061013
  Serious: No
  Sender: FDA-Public Use
  Company Number: 2005-BP-20731BP

PATIENT
  Age: 66 Year
  Sex: Female

DRUGS (9)
  1. SPIRIVA [Suspect]
     Indication: CHRONIC OBSTRUCTIVE PULMONARY DISEASE
     Dosage: 18 MCG (18 MCG), IH
     Route: 055
     Dates: start: 20051120
  2. NEXIUM [Concomitant]
  3. KLONOPIN [Concomitant]
  4. FLONASE [Concomitant]
  5. POTASSIUM (POTASSIUM) [Concomitant]
  6. CALTRATE (CALCIUM CARBONATE) [Concomitant]
  7. CLARINEX (NARINE) [Concomitant]
  8. EFFEXOR [Concomitant]
  9. SINGULAIR [Concomitant]

REACTIONS (3)
  - DRUG INEFFECTIVE [None]
  - DYSPHONIA [None]
  - THROAT IRRITATION [None]
